FAERS Safety Report 7546003-X (Version None)
Quarter: 2011Q2

REPORT INFORMATION
  Report Type: 
  Country: None (occurrence: None)
  Receive Date: 20110607
  Receipt Date: 20110524
  Transmission Date: 20111010
  Serious: Yes (Hospitalization, Other)
  Sender: FDA-Public Use
  Company Number: 1000019323

PATIENT
  Age: 94 Year
  Sex: Female

DRUGS (14)
  1. LASIX [Concomitant]
  2. CALCIPARINE [Concomitant]
  3. TORSEMIDE [Suspect]
     Dosage: 10 MG (10 MG, 1 IN 1 D); 25 MG (25 MG, 1 IN 1 D)
     Dates: start: 20101230
  4. TORSEMIDE [Suspect]
     Dosage: 10 MG (10 MG, 1 IN 1 D); 25 MG (25 MG, 1 IN 1 D)
     Dates: start: 20101221
  5. MEMANTINE [Suspect]
     Dosage: 20 MG (10 MG, 2 IN 1 D), ORAL
     Route: 048
     Dates: start: 20101223, end: 20101226
  6. LEVOTHYROXINE SODIUM [Suspect]
     Dosage: 100 MICROGRAM (100 MCG, 1 IN 1 D), ORAL; (LONG TERM TREATMENT)
     Route: 048
  7. MEMANTINE [Suspect]
     Dates: end: 20101209
  8. MEMANTINE [Suspect]
     Dosage: 10 MG (10 MG, 1 IN 1 D), ORAL; 5 MG (5MG, 1 IN 1 D) ORAL
     Route: 048
     Dates: start: 20110126, end: 20110220
  9. MEMANTINE [Suspect]
     Dosage: 10 MG (10 MG, 1 IN 1 D), ORAL; 5 MG (5MG, 1 IN 1 D) ORAL
     Route: 048
     Dates: start: 20101227, end: 20110125
  10. CEFUROXIME [Suspect]
     Dosage: 3000 MG (1500 MG, 2 IN 1 D), INTRAVENOUS (NOT OTHERWISE SPECIFIED)
     Route: 048
     Dates: start: 20101210, end: 20101213
  11. FUROSEMIDE [Concomitant]
  12. TEMGESIC (BUPRENORPHINE) (TABLET) (BUPRENORPHINE) [Concomitant]
  13. ASPIRIN CARDIO (ACETYLSALICYLIC ACID (TABLETS) (ACETYSALICYLIC ACID) [Concomitant]
  14. DAFLGAN (PARACETAMOL, CODEINE PHOSPHATE) (TABLETS) (PARAETAMOL, CODEIN [Concomitant]

REACTIONS (8)
  - FALL [None]
  - RENAL FAILURE ACUTE [None]
  - RASH ERYTHEMATOUS [None]
  - TOXIC SKIN ERUPTION [None]
  - FEMORAL NECK FRACTURE [None]
  - INCORRECT DOSE ADMINISTERED [None]
  - PRURITUS [None]
  - DERMATITIS ALLERGIC [None]
